FAERS Safety Report 26091677 (Version 1)
Quarter: 2025Q4

REPORT INFORMATION
  Report Type: Spontaneous
  Country: EU (occurrence: EU)
  Receive Date: 20251126
  Receipt Date: 20251126
  Transmission Date: 20260117
  Serious: Yes (Hospitalization)
  Sender: BANNER
  Company Number: None

PATIENT
  Age: 48 Year
  Sex: Male
  Weight: 100 kg

DRUGS (4)
  1. IBUPROFEN [Suspect]
     Active Substance: IBUPROFEN
     Indication: Influenza like illness
     Route: 048
     Dates: start: 20251021, end: 20251022
  2. OPDIVO [Suspect]
     Active Substance: NIVOLUMAB
     Indication: Rectal adenocarcinoma
     Dates: start: 20250926, end: 20250926
  3. PAROXETINE HYDROCHLORIDE [Concomitant]
     Active Substance: PAROXETINE HYDROCHLORIDE
  4. OPDIVO [Suspect]
     Active Substance: NIVOLUMAB
     Indication: Rectal adenocarcinoma
     Dates: start: 20251010, end: 20251010

REACTIONS (1)
  - Rash maculo-papular [Recovering/Resolving]

NARRATIVE: CASE EVENT DATE: 20251022
